FAERS Safety Report 8893298 (Version 1)
Quarter: 2012Q4

REPORT INFORMATION
  Report Type: 
  Country: US (occurrence: US)
  Receive Date: 20121107
  Receipt Date: 20121107
  Transmission Date: 20130627
  Serious: No
  Sender: FDA-Public Use
  Company Number: US-AMGEN-USASP2011050983

PATIENT
  Sex: Female

DRUGS (22)
  1. ENBREL [Suspect]
     Indication: PRODUCT USED FOR UNKNOWN INDICATION
     Dosage: 50 mg, qwk
  2. METHOTREXATE [Concomitant]
  3. PREDNISONE [Concomitant]
  4. HUMALOG INSULIN [Concomitant]
     Dosage: 100 ml, UNK
  5. SINGULAIR [Concomitant]
     Dosage: 10 mg, UNK
  6. JANUVIA [Concomitant]
     Dosage: 25 mg, UNK
  7. ZOMIG [Concomitant]
     Dosage: 5 mg, UNK
  8. ZYRTEC [Concomitant]
     Dosage: 10 mg, UNK
  9. DIOVAN [Concomitant]
     Dosage: 40 mg, UNK
  10. LANTUS                             /01483501/ [Concomitant]
     Dosage: 100 ml, UNK
  11. LOVASTATIN [Concomitant]
     Dosage: 10 mg, UNK
  12. OMEPRAZOLE [Concomitant]
     Dosage: 10 mg, UNK
  13. NOVOLOG [Concomitant]
     Dosage: 100 ml, UNK
  14. GLIPIZIDE [Concomitant]
     Dosage: 10 mg, UNK
  15. DIAZEPAM [Concomitant]
     Dosage: 10 mg, UNK
  16. FLONASE [Concomitant]
     Dosage: 0.05 UNK, UNK
  17. ADVAIR [Concomitant]
  18. METOPROLOL [Concomitant]
     Dosage: 25 mg, UNK
  19. FISH OIL [Concomitant]
  20. CALCIUM [Concomitant]
     Dosage: 1200 mg, UNK
  21. PROAIR HFA [Concomitant]
  22. TRIPLEX                            /00050502/ [Concomitant]

REACTIONS (1)
  - Rash pruritic [Unknown]
